FAERS Safety Report 6262166-0 (Version None)
Quarter: 2009Q3

REPORT INFORMATION
  Report Type: 
  Country: None (occurrence: None)
  Receive Date: 20090707
  Receipt Date: 20090707
  Transmission Date: 20100115
  Serious: Yes (Other)
  Sender: FDA-Public Use
  Company Number: None

PATIENT
  Sex: Male
  Weight: 114.76 kg

DRUGS (1)
  1. THE PHARMA PHARMACY RX# 4610811 TESTOSTERONE 5% COMPOUND [Suspect]
     Indication: BLOOD TESTOSTERONE ABNORMAL
     Dosage: 100 MG DAILY

REACTIONS (3)
  - SKIN DISORDER [None]
  - SKIN ULCER [None]
  - SPUTUM DISCOLOURED [None]
